FAERS Safety Report 16688729 (Version 1)
Quarter: 2019Q3

REPORT INFORMATION
  Report Type: Spontaneous
  Country: US (occurrence: US)
  Receive Date: 20190809
  Receipt Date: 20190809
  Transmission Date: 20191004
  Serious: No
  Sender: FDA-Public Use
  Company Number: US-PURDUE-USA-2019-0147770

PATIENT
  Sex: Female

DRUGS (4)
  1. BUTRANS [Suspect]
     Active Substance: BUPRENORPHINE
     Indication: INTERVERTEBRAL DISC DEGENERATION
     Dosage: 7.5 MCG/HR, WEEKLY
     Route: 062
  2. BUTRANS [Suspect]
     Active Substance: BUPRENORPHINE
     Indication: BACK PAIN
     Dosage: 5 MCG/HR, WEEKLY
     Route: 062
  3. BUTRANS [Suspect]
     Active Substance: BUPRENORPHINE
     Indication: PROLAPSE
     Dosage: 10 MCG/HR, WEEKLY
     Route: 062
     Dates: end: 201905
  4. BUTRANS [Suspect]
     Active Substance: BUPRENORPHINE
     Indication: BURSITIS
     Dosage: 10 MCG/HR, WEEKLY
     Route: 062
     Dates: start: 20190517

REACTIONS (9)
  - Therapeutic product effect decreased [Not Recovered/Not Resolved]
  - Skin injury [Recovered/Resolved]
  - Scar [Recovered/Resolved]
  - Withdrawal syndrome [Recovered/Resolved]
  - Depression [Recovered/Resolved]
  - Drug ineffective [Not Recovered/Not Resolved]
  - Product adhesion issue [Unknown]
  - Back pain [Not Recovered/Not Resolved]
  - Dry throat [Recovered/Resolved]
